FAERS Safety Report 7749406-3 (Version None)
Quarter: 2011Q3

REPORT INFORMATION
  Report Type: 
  Country: None (occurrence: None)
  Receive Date: 20110914
  Receipt Date: 20110907
  Transmission Date: 20111222
  Serious: Yes (Hospitalization)
  Sender: FDA-Public Use
  Company Number: JP-PFIZER INC-2011172778

PATIENT
  Age: 74 Year
  Sex: Female

DRUGS (13)
  1. TEMSIROLIMUS [Suspect]
     Indication: RENAL CELL CARCINOMA
     Dosage: 25 MG, WEEKLY
     Route: 042
     Dates: start: 20101127, end: 20110109
  2. MAGNESIUM OXIDE [Concomitant]
     Indication: PROPHYLAXIS
     Dosage: 330 MG, 3X/DAY
     Route: 048
  3. ACTOS [Concomitant]
     Indication: PROPHYLAXIS
     Dosage: 15 MG, 1X/DAY
     Route: 048
     Dates: start: 20101120
  4. WARFARIN [Concomitant]
     Indication: PROPHYLAXIS
     Dosage: 2 MG, 1X/DAY
     Route: 048
  5. POLARAMINE [Concomitant]
     Indication: PROPHYLAXIS
     Dosage: 5 MG, 1X/DAY
     Route: 042
     Dates: start: 20101204
  6. TRAMADOL HYDROCHLORIDE [Concomitant]
     Indication: RENAL CELL CARCINOMA
     Dosage: 25 MG, 4X/DAY
     Route: 048
  7. ACTOS [Concomitant]
     Indication: PULMONARY OEDEMA
  8. DEPAKENE [Concomitant]
     Indication: BRAIN NEOPLASM
     Dosage: 200 MG, 3X/DAY
  9. SIGMART [Concomitant]
     Indication: HYPERTENSION
     Dosage: 5 MG, 3X/DAY
     Route: 048
  10. LANSOPRAZOLE [Concomitant]
     Indication: PROPHYLAXIS
     Dosage: 30 MG, 1X/DAY
     Route: 048
  11. LOXONIN [Concomitant]
     Indication: RENAL CELL CARCINOMA
     Dosage: 60 MG, 3X/DAY
     Route: 048
     Dates: start: 20101206
  12. CALCIUM POLYSTYRENE SULFONATE [Concomitant]
     Indication: RENAL CELL CARCINOMA
     Dosage: 25 G, 2X/DAY
     Route: 048
     Dates: start: 20101123
  13. PURSENNID [Concomitant]
     Indication: PROPHYLAXIS
     Dosage: UNK
     Route: 048
     Dates: start: 20101129

REACTIONS (1)
  - PULMONARY OEDEMA [None]
